FAERS Safety Report 7827759-5 (Version None)
Quarter: 2011Q4

REPORT INFORMATION
  Report Type: 
  Country: None (occurrence: None)
  Receive Date: 20111020
  Receipt Date: 20111010
  Transmission Date: 20120403
  Serious: Yes (Hospitalization)
  Sender: FDA-Public Use
  Company Number: DE-BAXTER-2011BH027034

PATIENT
  Age: 72 Year
  Sex: Female

DRUGS (2)
  1. TISSUCOL STIM4 [Suspect]
     Indication: BRAIN TUMOUR OPERATION
     Route: 065
     Dates: start: 20110815, end: 20110815
  2. FIBRIN SEALANT NOS [Concomitant]
     Indication: BRAIN OPERATION
     Route: 065

REACTIONS (1)
  - DRUG INEFFECTIVE [None]
